FAERS Safety Report 6733123-2 (Version None)
Quarter: 2010Q2

REPORT INFORMATION
  Report Type: 
  Country: None (occurrence: None)
  Receive Date: 20100520
  Receipt Date: 20100513
  Transmission Date: 20101027
  Serious: Yes (Death, Hospitalization)
  Sender: FDA-Public Use
  Company Number: JP-SP-2010-00624

PATIENT
  Sex: Male

DRUGS (4)
  1. IMMUCYST [Suspect]
     Indication: MALIGNANT NEOPLASM OF RENAL PELVIS
     Route: 043
     Dates: start: 20060925, end: 20100115
  2. GLIMEPIRIDE [Concomitant]
  3. TAMSULOSIN HYDROCHLORIDE [Concomitant]
  4. IMIDAFENACIN [Concomitant]

REACTIONS (7)
  - BOVINE TUBERCULOSIS [None]
  - DISSEMINATED INTRAVASCULAR COAGULATION [None]
  - HEPATIC FUNCTION ABNORMAL [None]
  - INTERSTITIAL LUNG DISEASE [None]
  - OFF LABEL USE [None]
  - PLATELET COUNT DECREASED [None]
  - PYREXIA [None]
